FAERS Safety Report 7486034-1 (Version None)
Quarter: 2011Q2

REPORT INFORMATION
  Report Type: 
  Country: None (occurrence: None)
  Receive Date: 20110517
  Receipt Date: 20110415
  Transmission Date: 20111010
  Serious: Yes (Other)
  Sender: FDA-Public Use
  Company Number: US-BAYER-201022303NA

PATIENT
  Age: 25 Year
  Sex: Female
  Weight: 85.455 kg

DRUGS (1)
  1. MIRENA [Suspect]
     Indication: CONTRACEPTION
     Dosage: FREQUENCY: CONTINUOUS
     Route: 015
     Dates: start: 20080801, end: 20100721

REACTIONS (9)
  - DEVICE BREAKAGE [None]
  - UTERINE PERFORATION [None]
  - DYSPAREUNIA [None]
  - PAIN [None]
  - VAGINAL HAEMORRHAGE [None]
  - ECTOPIC PREGNANCY WITH INTRAUTERINE DEVICE [None]
  - COITAL BLEEDING [None]
  - EMOTIONAL DISTRESS [None]
  - ABDOMINAL PAIN [None]
